FAERS Safety Report 9250134 (Version 2)
Quarter: 2013Q3

REPORT INFORMATION
  Report Type: Spontaneous
  Country: US (occurrence: US)
  Receive Date: 20130424
  Receipt Date: 20130927
  Transmission Date: 20140515
  Serious: No
  Sender: FDA-Public Use
  Company Number: US-BIOGENIDEC-2013BI035962

PATIENT
  Age: 33 Year
  Sex: Female

DRUGS (2)
  1. TYSABRI [Suspect]
     Indication: MULTIPLE SCLEROSIS
     Route: 042
     Dates: start: 20110627
  2. AVONEX [Concomitant]
     Indication: MULTIPLE SCLEROSIS
     Route: 030
     Dates: start: 20100701

REACTIONS (8)
  - Muscle spasticity [Not Recovered/Not Resolved]
  - General symptom [Not Recovered/Not Resolved]
  - Head injury [Recovered/Resolved]
  - Concussion [Recovered/Resolved]
  - Influenza [Unknown]
  - Multiple sclerosis relapse [Unknown]
  - Viral upper respiratory tract infection [Unknown]
  - Infection susceptibility increased [Recovered/Resolved]
